FAERS Safety Report 6226938-0 (Version None)
Quarter: 2009Q2

REPORT INFORMATION
  Report Type: 
  Country: None (occurrence: None)
  Receive Date: 20090612
  Receipt Date: 20090522
  Transmission Date: 20091009
  Serious: No
  Sender: FDA-Public Use
  Company Number: US-ABBOTT-09P-163-0575636-00

PATIENT
  Sex: Female
  Weight: 53.572 kg

DRUGS (13)
  1. HUMIRA [Suspect]
     Indication: ANKYLOSING SPONDYLITIS
     Route: 058
     Dates: start: 20090512
  2. METHOTREXATE [Concomitant]
     Indication: ANKYLOSING SPONDYLITIS
     Route: 048
  3. FOLIC ACID [Concomitant]
     Indication: MEDICAL DIET
     Route: 048
  4. ALLEGRA [Concomitant]
     Indication: HYPERSENSITIVITY
     Route: 048
  5. FLONASE [Concomitant]
     Indication: HYPERSENSITIVITY
     Route: 055
  6. SYMBICORT [Concomitant]
     Indication: ASTHMA
     Route: 055
  7. PROVENTIL-HFA [Concomitant]
     Indication: ASTHMA
  8. NEXIUM [Concomitant]
     Indication: GASTROOESOPHAGEAL REFLUX DISEASE
     Route: 048
  9. REGLAN [Concomitant]
     Indication: GASTROOESOPHAGEAL REFLUX DISEASE
     Route: 048
  10. LEXAPRO [Concomitant]
     Indication: ANXIETY
     Route: 048
  11. LEXAPRO [Concomitant]
     Indication: DEPRESSION
  12. KLONOPIN [Concomitant]
     Indication: ANXIETY
  13. LYRICA [Concomitant]
     Indication: ANKYLOSING SPONDYLITIS
     Route: 048

REACTIONS (3)
  - DIARRHOEA [None]
  - DIZZINESS [None]
  - VOMITING [None]
